FAERS Safety Report 9125581 (Version 1)
Quarter: 2013Q1

REPORT INFORMATION
  Report Type: Spontaneous
  Country: FR (occurrence: FR)
  Receive Date: 20130117
  Receipt Date: 20130117
  Transmission Date: 20140127
  Serious: Yes (Other)
  Sender: FDA-Public Use
  Company Number: FR-ASTRAZENECA-2013SE02612

PATIENT
  Age: 43 Year
  Sex: Female

DRUGS (3)
  1. XEROQUEL [Suspect]
     Indication: BIPOLAR DISORDER
     Dosage: DOSE PROGRESSIVELY INCREASED TO 200 MG DAILY
     Route: 048
     Dates: start: 20120209, end: 20120402
  2. XEROQUEL [Suspect]
     Indication: BIPOLAR DISORDER
     Route: 048
     Dates: start: 20120402, end: 20120419
  3. DEPAKOTE [Concomitant]

REACTIONS (4)
  - Erythema [Recovered/Resolved]
  - Inflammation [Recovered/Resolved]
  - Arthropathy [Recovered/Resolved]
  - Oedema peripheral [Recovered/Resolved]
